FAERS Safety Report 9502006 (Version 1)
Quarter: 2013Q3

REPORT INFORMATION
  Report Type: Spontaneous
  Country: US (occurrence: US)
  Receive Date: 20130905
  Receipt Date: 20130905
  Transmission Date: 20140515
  Serious: Yes (Other)
  Sender: FDA-Public Use
  Company Number: US-PFIZER INC-2013252862

PATIENT
  Age: 58 Year
  Sex: Female

DRUGS (4)
  1. EPINEPHRINE [Suspect]
     Dosage: UNK
  2. AFRIN [Suspect]
     Dosage: UNK
  3. CAFFEINE [Suspect]
     Dosage: UNK
  4. RELAFEN [Suspect]
     Dosage: UNK

REACTIONS (2)
  - Drug hypersensitivity [Unknown]
  - Heart rate increased [Unknown]
